FAERS Safety Report 15297403 (Version 3)
Quarter: 2019Q1

REPORT INFORMATION
  Report Type: Spontaneous
  Country: IT (occurrence: IT)
  Receive Date: 20180820
  Receipt Date: 20190102
  Transmission Date: 20190417
  Serious: Yes (Life-Threatening, Hospitalization, Other)
  Sender: FDA-Public Use
  Company Number: IT-PFIZER INC-2017480957

PATIENT
  Age: 15 Year
  Sex: Female
  Weight: 85 kg

DRUGS (33)
  1. LASIX [Concomitant]
     Active Substance: FUROSEMIDE
     Dosage: 15 ML, UNK
  2. ETOPOSIDE. [Suspect]
     Active Substance: ETOPOSIDE
     Dosage: 400 MG, 1X/DAY
     Route: 042
     Dates: start: 20170529
  3. LASIX [Concomitant]
     Active Substance: FUROSEMIDE
     Dosage: 1 DF, UNK
     Route: 042
     Dates: start: 20170524, end: 20170527
  4. FLUCONAZOLE. [Concomitant]
     Active Substance: FLUCONAZOLE
     Dosage: 400 MG, 1X/DAY
     Dates: start: 20170523, end: 20170606
  5. POTASSIUM CHLORIDE. [Concomitant]
     Active Substance: POTASSIUM CHLORIDE
     Dosage: 15 ML, 1X/DAY
     Dates: start: 20170524
  6. RANITIDINE HYDROCHLORIDE. [Concomitant]
     Active Substance: RANITIDINE HYDROCHLORIDE
     Dosage: 150 MG, 1X/DAY
     Route: 048
     Dates: start: 20170523, end: 20170602
  7. FOTEMUSTINE [Suspect]
     Active Substance: FOTEMUSTINE
     Indication: AUTOLOGOUS BONE MARROW TRANSPLANTATION THERAPY
     Dosage: 300 MG, 1X/DAY
     Route: 042
     Dates: start: 20170524, end: 20170525
  8. LASIX [Concomitant]
     Active Substance: FUROSEMIDE
     Dosage: 300 MG, UNK
     Dates: start: 20170526, end: 20170531
  9. ALOXI [Concomitant]
     Active Substance: PALONOSETRON HYDROCHLORIDE
     Dosage: 1 DF, 1X/DAY
     Route: 042
     Dates: start: 20170524, end: 20170527
  10. EMEND [Concomitant]
     Active Substance: APREPITANT
     Dosage: UNK
     Dates: start: 20170523, end: 20170527
  11. LASIX [Concomitant]
     Active Substance: FUROSEMIDE
     Dosage: 600 MG, UNK
  12. LASIX [Concomitant]
     Active Substance: FUROSEMIDE
     Dosage: 2400 MG, UNK
     Dates: start: 20170523, end: 20170529
  13. LASIX [Concomitant]
     Active Substance: FUROSEMIDE
     Dosage: 600 MG, UNK
     Dates: start: 20170523, end: 20170623
  14. ZOVIRAX [Concomitant]
     Active Substance: ACYCLOVIR
     Dosage: 2400 MG, 1X/DAY
     Route: 048
     Dates: start: 20170523, end: 20170529
  15. CIPROXIN [Concomitant]
     Active Substance: CIPROFLOXACIN
     Dosage: 1000 MG, 1X/DAY
     Route: 048
     Dates: start: 20170523, end: 20170606
  16. RANITIDINE. [Concomitant]
     Active Substance: RANITIDINE
     Dosage: 150 MG, 1X/DAY
     Route: 042
     Dates: start: 20170523, end: 20170602
  17. TN [Concomitant]
     Active Substance: TROLNITRATE
     Dosage: 30 ML, UNK
     Route: 048
  18. FOTEMUSTINE [Suspect]
     Active Substance: FOTEMUSTINE
     Dosage: 300 MG, 1X/DAY
     Route: 042
     Dates: start: 20170525
  19. LASIX [Concomitant]
     Active Substance: FUROSEMIDE
     Dosage: 120 MG, 1X/DAY
     Route: 042
     Dates: start: 20170523, end: 20170620
  20. LASIX [Concomitant]
     Active Substance: FUROSEMIDE
     Dosage: 10 ML, UNK
  21. LASIX [Concomitant]
     Active Substance: FUROSEMIDE
     Dosage: 30 ML, UNK
  22. DEURSIL [Concomitant]
     Active Substance: URSODIOL
     Dosage: 600 MG, 1X/DAY
     Route: 048
     Dates: start: 20170523, end: 20170623
  23. CYTARABINE. [Suspect]
     Active Substance: CYTARABINE
     Dosage: 400 MG, 1X/DAY
     Route: 042
     Dates: start: 20170529
  24. ETOPOSIDE. [Suspect]
     Active Substance: ETOPOSIDE
     Indication: AUTOLOGOUS BONE MARROW TRANSPLANTATION THERAPY
     Dosage: 400 MG, 1X/DAY
     Route: 042
     Dates: start: 20170526, end: 20170529
  25. HEPARIN SODIUM N [Concomitant]
     Active Substance: HEPARIN SODIUM
     Dosage: 8500 KIU, DAILY
     Route: 058
     Dates: start: 20170523, end: 20170623
  26. ALLOPURINOL. [Concomitant]
     Active Substance: ALLOPURINOL
     Dosage: 300 MG, DAILY
     Dates: start: 20170526, end: 20170531
  27. CYTARABINE. [Suspect]
     Active Substance: CYTARABINE
     Indication: AUTOLOGOUS BONE MARROW TRANSPLANTATION THERAPY
     Dosage: 400 MG, 1X/DAY
     Route: 042
     Dates: start: 20170526, end: 20170529
  28. ALKERAN [Suspect]
     Active Substance: MELPHALAN
     Indication: AUTOLOGOUS BONE MARROW TRANSPLANTATION THERAPY
     Dosage: 280 MG, 1X/DAY
     Route: 042
     Dates: start: 20170530, end: 20170530
  29. LASIX [Concomitant]
     Active Substance: FUROSEMIDE
     Dosage: 400 MG, UNK
  30. LASIX [Concomitant]
     Active Substance: FUROSEMIDE
     Dosage: 1000 MG, UNK
     Dates: start: 20170523, end: 20170606
  31. LASIX [Concomitant]
     Active Substance: FUROSEMIDE
     Dosage: 150 MG, UNK
     Dates: start: 20170523, end: 20170602
  32. MAGNESIUM CHLORIDE. [Concomitant]
     Active Substance: MAGNESIUM CHLORIDE
     Dosage: 10 ML, 1X/DAY
     Dates: start: 20170525
  33. NYSTATIN. [Concomitant]
     Active Substance: NYSTATIN
     Dosage: 30 ML, UNK
     Route: 048
     Dates: start: 20170523, end: 20170623

REACTIONS (14)
  - Tonsillitis [Unknown]
  - Product administered to patient of inappropriate age [Unknown]
  - Vomiting [Recovered/Resolved]
  - Neutropenia [Recovered/Resolved]
  - Pyrexia [Recovered/Resolved]
  - Product use in unapproved indication [Unknown]
  - Mucosal inflammation [Recovering/Resolving]
  - Oropharyngeal pain [Recovered/Resolved]
  - Faeces soft [Recovering/Resolving]
  - Nausea [Unknown]
  - Thrombocytopenia [Recovered/Resolved]
  - Cough [Recovered/Resolved]
  - Erythema [Recovered/Resolved]
  - Tonsillar haemorrhage [Unknown]

NARRATIVE: CASE EVENT DATE: 2017
